FAERS Safety Report 11971905 (Version 1)
Quarter: 2016Q1

REPORT INFORMATION
  Report Type: Spontaneous
  Country: US (occurrence: US)
  Receive Date: 20160128
  Receipt Date: 20160128
  Transmission Date: 20160526
  Serious: Yes (Other)
  Sender: FDA-Public Use
  Company Number: US-GLAXOSMITHKLINE-US2016010922

PATIENT
  Age: 62 Year
  Sex: Male

DRUGS (1)
  1. FLONASE ALLERGY RELIEF [Suspect]
     Active Substance: FLUTICASONE PROPIONATE
     Indication: HYPERSENSITIVITY
     Dosage: UNK
     Dates: start: 2015, end: 20160124

REACTIONS (13)
  - Nasal congestion [Recovering/Resolving]
  - Rebound effect [Recovering/Resolving]
  - Condition aggravated [Recovering/Resolving]
  - Abnormal behaviour [Recovering/Resolving]
  - Drug ineffective [Unknown]
  - Suicidal ideation [Recovering/Resolving]
  - Dyspnoea [Recovering/Resolving]
  - Feeling abnormal [Recovering/Resolving]
  - Nasal disorder [Recovering/Resolving]
  - Insomnia [Recovering/Resolving]
  - Anxiety [Recovering/Resolving]
  - Nasal discomfort [Recovering/Resolving]
  - Emotional distress [Recovering/Resolving]
